FAERS Safety Report 5930664-2 (Version None)
Quarter: 2008Q4

REPORT INFORMATION
  Report Type: 
  Country: None (occurrence: None)
  Receive Date: 20081027
  Receipt Date: 20081021
  Transmission Date: 20090506
  Serious: Yes (Disabling)
  Sender: FDA-Public Use
  Company Number: US-BAYER-200834563NA

PATIENT
  Age: 50 Year
  Sex: Male
  Weight: 68 kg

DRUGS (8)
  1. FLUDARA [Suspect]
     Indication: B-CELL LYMPHOMA
     Route: 042
     Dates: start: 20080903, end: 20080903
  2. FLUDARA [Suspect]
     Route: 042
     Dates: start: 20080904, end: 20080904
  3. FLUDARA [Suspect]
     Route: 042
     Dates: start: 20080905, end: 20080905
  4. FLUDARA [Suspect]
     Route: 042
     Dates: start: 20081003, end: 20081003
  5. FLUDARA [Suspect]
     Route: 042
     Dates: start: 20081006, end: 20081006
  6. FLUDARA [Suspect]
     Route: 042
     Dates: start: 20081002, end: 20081002
  7. RITUXAN [Concomitant]
  8. BACTRIM [Concomitant]

REACTIONS (2)
  - AFFECT LABILITY [None]
  - COGNITIVE DISORDER [None]
